FAERS Safety Report 9773535 (Version 1)
Quarter: 2013Q4

REPORT INFORMATION
  Report Type: Spontaneous
  Country: GB (occurrence: None)
  Receive Date: 20131217
  Receipt Date: 20131217
  Transmission Date: 20140711
  Serious: Yes (Life-Threatening)
  Sender: FDA-Public Use
  Company Number: AUR-APL-2013-10444

PATIENT
  Age: 73 Year
  Sex: Female

DRUGS (9)
  1. IRBESARTAN (IRBESARTAN) [Suspect]
     Indication: HYPERTENSION
     Route: 048
     Dates: end: 20131125
  2. METFORMIN (METFORMIN) [Suspect]
     Indication: DIABETES MELLITUS
     Route: 048
     Dates: end: 20131125
  3. CICLOSPORIN (CICLOSPORIN) [Suspect]
     Indication: PRODUCT USED FOR UNKNOWN INDICATION
     Route: 048
     Dates: start: 20131116, end: 20131125
  4. BISOPROLOL (BISOPROLOL) [Concomitant]
  5. CARBOCISTEINE (CARBOCISTEINE) [Concomitant]
  6. EFUDIX (FLUOUROURACIL) [Concomitant]
  7. FOLIC ACID (FOLIC ACID) [Concomitant]
  8. ISOSORBIDE MONONITRATE (ISOSORBIDE MONONITRATE) [Concomitant]
  9. MABTHERA [Concomitant]

REACTIONS (1)
  - Renal failure [None]
